FAERS Safety Report 13777371 (Version 2)
Quarter: 2018Q1

REPORT INFORMATION
  Report Type: Spontaneous
  Country: DE (occurrence: DE)
  Receive Date: 20170721
  Receipt Date: 20180131
  Transmission Date: 20180508
  Serious: Yes (Hospitalization)
  Sender: FDA-Public Use
  Company Number: DE-MYLANLABS-2017M1042359

PATIENT
  Age: 57 Year
  Sex: Male

DRUGS (5)
  1. LEPONEX [Suspect]
     Active Substance: CLOZAPINE
     Dosage: 125 MG, PM
     Dates: start: 201705
  2. LEPONEX [Suspect]
     Active Substance: CLOZAPINE
     Dosage: 125 MG, PM
     Dates: start: 201705
  3. LEPONEX [Suspect]
     Active Substance: CLOZAPINE
     Indication: SCHIZOPHRENIA
     Dosage: UNK
     Dates: start: 20170418
  4. LEPONEX [Suspect]
     Active Substance: CLOZAPINE
     Dosage: 200 MG, QD
     Dates: start: 2017
  5. LEPONEX [Suspect]
     Active Substance: CLOZAPINE
     Dosage: 150 MG, QD
     Dates: start: 20170517

REACTIONS (16)
  - Abdominal distension [Unknown]
  - Antipsychotic drug level below therapeutic [Unknown]
  - Hyponatraemia [Not Recovered/Not Resolved]
  - Vomiting [Unknown]
  - Restlessness [Unknown]
  - Salivary hypersecretion [Recovering/Resolving]
  - Investigation noncompliance [Unknown]
  - Condition aggravated [Unknown]
  - Nausea [Unknown]
  - Iron deficiency [Unknown]
  - Eosinophilia [Unknown]
  - Oedema peripheral [Recovered/Resolved]
  - Hypokalaemia [Unknown]
  - Leukocytosis [Unknown]
  - Insomnia [Unknown]
  - Blood pressure increased [Unknown]

NARRATIVE: CASE EVENT DATE: 2017
